FAERS Safety Report 4503726-4 (Version None)
Quarter: 2004Q4

REPORT INFORMATION
  Report Type: 
  Country: None (occurrence: None)
  Receive Date: 20041115
  Receipt Date: 20041105
  Transmission Date: 20050328
  Serious: Yes (Other)
  Sender: FDA-Public Use
  Company Number: 2004-09-0895

PATIENT
  Age: 63 Year
  Sex: Male
  Weight: 70 kg

DRUGS (5)
  1. CLARINEX [Suspect]
     Indication: ECZEMA
     Dosage: 1 TAB QD ORAL
     Route: 048
     Dates: start: 20031013, end: 20040805
  2. CLARINEX [Suspect]
     Indication: RHINITIS ALLERGIC
     Dosage: 1 TAB QD ORAL
     Route: 048
     Dates: start: 20031013, end: 20040805
  3. OMEPRAZOLE [Concomitant]
  4. PLAVIX [Concomitant]
  5. LESCOL [Concomitant]

REACTIONS (3)
  - ELECTROCARDIOGRAM QT PROLONGED [None]
  - SINUS BRADYCARDIA [None]
  - SUPRAVENTRICULAR EXTRASYSTOLES [None]
